FAERS Safety Report 7593569-X (Version None)
Quarter: 2011Q2

REPORT INFORMATION
  Report Type: 
  Country: None (occurrence: None)
  Receive Date: 20110628
  Receipt Date: 20110613
  Transmission Date: 20111010
  Serious: Yes (Other)
  Sender: FDA-Public Use
  Company Number: IR-ACCORD-009633

PATIENT
  Age: 41 Year
  Sex: Male

DRUGS (2)
  1. PREDNISOLONE [Suspect]
     Indication: RENAL TRANSPLANT
     Dosage: 1.00-MG/KG-1.0DAY
  2. MYCOPHENOLATE MOFETIL [Suspect]
     Indication: RENAL TRANSPLANT
     Dosage: 2000.00-MG-1.0DAY

REACTIONS (3)
  - LEUKOPENIA [None]
  - CYTOMEGALOVIRUS INFECTION [None]
  - LEPROMATOUS LEPROSY [None]
